FAERS Safety Report 13086250 (Version 1)
Quarter: 2017Q1

REPORT INFORMATION
  Report Type: Spontaneous
  Country: US (occurrence: US)
  Receive Date: 20170104
  Receipt Date: 20170104
  Transmission Date: 20170428
  Serious: No
  Sender: FDA-Public Use
  Company Number: US-ALLERGAN-1670610US

PATIENT
  Age: 6 Decade
  Sex: Male

DRUGS (2)
  1. VRAYLAR [Suspect]
     Active Substance: CARIPRAZINE
     Indication: BIPOLAR DISORDER
     Dosage: 1.5 MG, QD
     Dates: start: 201609, end: 201609
  2. VRAYLAR [Suspect]
     Active Substance: CARIPRAZINE
     Indication: SCHIZOAFFECTIVE DISORDER

REACTIONS (2)
  - Agitation [Unknown]
  - Restlessness [Unknown]
